FAERS Safety Report 24367109 (Version 1)
Quarter: 2024Q3

REPORT INFORMATION
  Report Type: Spontaneous
  Country: FR (occurrence: FR)
  Receive Date: 20240926
  Receipt Date: 20240926
  Transmission Date: 20241017
  Serious: Yes (Other)
  Sender: MYLAN
  Company Number: None

PATIENT
  Age: 1 Month
  Sex: Female
  Weight: 3.4 kg

DRUGS (1)
  1. VANCOMYCIN [Suspect]
     Active Substance: VANCOMYCIN
     Indication: Staphylococcal bacteraemia
     Dosage: 45 MILLIGRAM/KILOGRAM
     Route: 042
     Dates: start: 20240813

REACTIONS (3)
  - Vancomycin infusion reaction [Recovered/Resolved]
  - Incorrect dose administered [Recovered/Resolved]
  - Product prescribing error [Recovered/Resolved]

NARRATIVE: CASE EVENT DATE: 20240813
